FAERS Safety Report 5400174-X (Version None)
Quarter: 2007Q3

REPORT INFORMATION
  Report Type: 
  Country: None (occurrence: None)
  Receive Date: 20070725
  Receipt Date: 20070711
  Transmission Date: 20080115
  Serious: Yes (Hospitalization)
  Sender: FDA-Public Use
  Company Number: GXKR2007GB05990

PATIENT
  Sex: Female

DRUGS (2)
  1. CITALOPRAM HYDROBROMIDE [Suspect]
     Indication: POSTPARTUM DEPRESSION
     Dosage: 20 MG, QD
  2. HYPERICUM PERFORATION (NGX) (HYPERICUM PERFORATION) UNKNOWN [Suspect]
     Indication: POSTPARTUM DEPRESSION

REACTIONS (10)
  - ABDOMINAL DISCOMFORT [None]
  - ABNORMAL BEHAVIOUR [None]
  - AGITATION [None]
  - BLOOD PRESSURE FLUCTUATION [None]
  - DRUG INTERACTION [None]
  - HYPERHIDROSIS [None]
  - NAUSEA [None]
  - SEROTONIN SYNDROME [None]
  - SUICIDAL IDEATION [None]
  - TACHYCARDIA [None]
